FAERS Safety Report 10474784 (Version 5)
Quarter: 2014Q4

REPORT INFORMATION
  Report Type: Spontaneous
  Country: US (occurrence: US)
  Receive Date: 20140925
  Receipt Date: 20141126
  Transmission Date: 20150528
  Serious: Yes (Hospitalization)
  Sender: FDA-Public Use
  Company Number: US-UNITED THERAPEUTICS-UNT-2014-007871

PATIENT
  Age: 68 Year
  Sex: Male
  Weight: 113.38 kg

DRUGS (4)
  1. OPSUMIT [Concomitant]
     Active Substance: MACITENTAN
     Indication: PRODUCT USED FOR UNKNOWN INDICATION
  2. WARFARIN [Concomitant]
     Active Substance: WARFARIN
     Indication: PRODUCT USED FOR UNKNOWN INDICATION
  3. ADCIRCA [Concomitant]
     Active Substance: TADALAFIL
     Indication: PRODUCT USED FOR UNKNOWN INDICATION
  4. REMODULIN [Suspect]
     Active Substance: TREPROSTINIL
     Indication: PULMONARY ARTERIAL HYPERTENSION
     Dosage: 0.058 ?G/KG, CONTINUING
     Route: 058
     Dates: start: 20120710

REACTIONS (12)
  - Renal impairment [Unknown]
  - Splenic rupture [Recovered/Resolved]
  - Pulseless electrical activity [Unknown]
  - Concussion [Unknown]
  - Device breakage [Recovered/Resolved]
  - Multiple injuries [Unknown]
  - Rib fracture [Recovered/Resolved]
  - Drug dose omission [Recovered/Resolved]
  - Fall [Recovered/Resolved]
  - Device issue [Recovered/Resolved]
  - Renal tubular necrosis [Unknown]
  - Accident [Unknown]

NARRATIVE: CASE EVENT DATE: 2014
